FAERS Safety Report 25914107 (Version 2)
Quarter: 2025Q4

REPORT INFORMATION
  Report Type: Report from Study
  Country: CA (occurrence: CA)
  Receive Date: 20251013
  Receipt Date: 20251223
  Transmission Date: 20260118
  Serious: Yes (Other)
  Sender: PFIZER
  Company Number: CA-PFIZER INC-202500164139

PATIENT
  Age: 59 Year
  Sex: Female
  Weight: 72 kg

DRUGS (5)
  1. IXIFI [Suspect]
     Active Substance: INFLIXIMAB-QBTX
     Indication: Crohn^s disease
     Dosage: 770 MG, EVERY 5 WEEKS
     Route: 042
     Dates: start: 20250717, end: 20250717
  2. IXIFI [Suspect]
     Active Substance: INFLIXIMAB-QBTX
     Dosage: 770 MG, 6 WEEKS 6 DAYS (EVERY 5 WEEKS)
     Route: 042
     Dates: start: 20250903
  3. IXIFI [Suspect]
     Active Substance: INFLIXIMAB-QBTX
     Dosage: 770 MG, EVERY 5 WEEKS
     Route: 042
     Dates: start: 20251007
  4. IXIFI [Suspect]
     Active Substance: INFLIXIMAB-QBTX
     Dosage: 770 MG, EVERY 5 WEEK
     Route: 042
     Dates: start: 20251111
  5. IXIFI [Suspect]
     Active Substance: INFLIXIMAB-QBTX
     Dosage: 770 MG, EVERY 5 WEEKS
     Route: 042
     Dates: start: 20251216

REACTIONS (3)
  - Lower respiratory tract infection [Recovering/Resolving]
  - Uveitis [Not Recovered/Not Resolved]
  - Condition aggravated [Not Recovered/Not Resolved]

NARRATIVE: CASE EVENT DATE: 20250101
